FAERS Safety Report 10721746 (Version 7)
Quarter: 2015Q2

REPORT INFORMATION
  Report Type: Spontaneous
  Country: US (occurrence: US)
  Receive Date: 20150119
  Receipt Date: 20150609
  Transmission Date: 20150821
  Serious: Yes (Hospitalization, Disabling, Other)
  Sender: FDA-Public Use
  Company Number: US-009507513-1105USA03977

PATIENT
  Sex: Female
  Weight: 55.33 kg

DRUGS (5)
  1. ALENDRONATE SODIUM. [Suspect]
     Active Substance: ALENDRONATE SODIUM
     Indication: OSTEOPENIA
     Dosage: 70 MG, UNK
     Route: 048
     Dates: start: 2008
  2. HORMONES (UNSPECIFIED) [Concomitant]
     Active Substance: UNSPECIFIED INGREDIENT
     Indication: OSTEOPENIA
     Dosage: UNK
     Dates: start: 2006
  3. FOSAMAX PLUS D [Suspect]
     Active Substance: ALENDRONATE SODIUM\CHOLECALCIFEROL
     Indication: OSTEOPENIA
     Dosage: 70MG/2800 IU
     Route: 048
     Dates: start: 200706
  4. FOSAMAX [Suspect]
     Active Substance: ALENDRONATE SODIUM
     Indication: OSTEOPENIA
     Dosage: 35 MG, UNK
     Route: 048
     Dates: end: 20020218
  5. FOSAMAX [Suspect]
     Active Substance: ALENDRONATE SODIUM
     Dosage: 70 MG, QW
     Route: 048
     Dates: start: 200202, end: 2009

REACTIONS (23)
  - Femur fracture [Unknown]
  - Osteogenesis imperfecta [Not Recovered/Not Resolved]
  - Osteomalacia [Unknown]
  - Muscle spasms [Unknown]
  - Gastrooesophageal reflux disease [Unknown]
  - Open reduction of fracture [Unknown]
  - Osteoarthritis [Not Recovered/Not Resolved]
  - Hypervitaminosis [Unknown]
  - Insomnia [Unknown]
  - Dental caries [Unknown]
  - Vitamin D deficiency [Recovered/Resolved]
  - Anaemia postoperative [Recovering/Resolving]
  - Medical device pain [Unknown]
  - Multiple sclerosis [Unknown]
  - Transfusion [Unknown]
  - Osteoporosis [Unknown]
  - Scoliosis [Unknown]
  - Dental implantation [Unknown]
  - Large intestine polyp [Unknown]
  - Femur fracture [Recovering/Resolving]
  - Arthritis [Unknown]
  - Rhinitis allergic [Unknown]
  - Constipation [Unknown]

NARRATIVE: CASE EVENT DATE: 20020218
